FAERS Safety Report 19477622 (Version 1)
Quarter: 2021Q2

REPORT INFORMATION
  Report Type: Spontaneous
  Country: NL (occurrence: ES)
  Receive Date: 20210630
  Receipt Date: 20210630
  Transmission Date: 20210717
  Serious: Yes (Other)
  Sender: FDA-Public Use
  Company Number: ES-FRESENIUS KABI-FK202106480

PATIENT
  Age: 62 Year
  Sex: Male

DRUGS (3)
  1. CEFTRIAXONE FOR INJECTION (MANUFACTURER UNKNOWN) [Suspect]
     Active Substance: CEFTRIAXONE
     Indication: PNEUMONIA
     Dosage: 2 GRAMS/DAY
     Route: 042
     Dates: start: 20191014, end: 20191017
  2. LEVOFLOXACIN (MANUFACTURER UNKNOWN) [Suspect]
     Active Substance: LEVOFLOXACIN
     Indication: PNEUMONIA
     Dosage: 500MG/D
     Route: 042
     Dates: start: 20191014, end: 20191025
  3. DEXKETOPROFEN [Suspect]
     Active Substance: DEXKETOPROFEN
     Indication: TENDERNESS
     Dosage: 25MG/8H
     Route: 042
     Dates: start: 20191018, end: 20191022

REACTIONS (1)
  - Hepatitis cholestatic [Recovered/Resolved]

NARRATIVE: CASE EVENT DATE: 20191024
